FAERS Safety Report 5786881-8 (Version None)
Quarter: 2008Q2

REPORT INFORMATION
  Report Type: 
  Country: None (occurrence: None)
  Receive Date: 20080625
  Receipt Date: 20080613
  Transmission Date: 20081010
  Serious: Yes (Other)
  Sender: FDA-Public Use
  Company Number: BR-JNJFOC-20080603948

PATIENT
  Sex: Female

DRUGS (1)
  1. REMICADE [Suspect]
     Indication: TRANSMISSION OF DRUG VIA SEMEN
     Route: 050

REACTIONS (2)
  - ABORTION SPONTANEOUS [None]
  - DRUG EXPOSURE DURING PREGNANCY [None]
